FAERS Safety Report 4681594-8 (Version None)
Quarter: 2005Q2

REPORT INFORMATION
  Report Type: 
  Country: None (occurrence: None)
  Receive Date: 20050602
  Receipt Date: 20050512
  Transmission Date: 20051028
  Serious: Yes (Other)
  Sender: FDA-Public Use
  Company Number: USA050393670

PATIENT
  Age: 73 Year
  Sex: Female
  Weight: 42 kg

DRUGS (11)
  1. FORTEO [Suspect]
     Indication: OSTEOPOROSIS
     Dosage: 20 UG DAY
     Dates: start: 20040801
  2. DARVOCET-N 100 [Concomitant]
  3. CELEBREX [Concomitant]
  4. SECTRAL [Concomitant]
  5. PROTONIX [Concomitant]
  6. FOLTX [Concomitant]
  7. MIRALAX [Concomitant]
  8. ASPIRIN [Concomitant]
  9. HYDROCHLOROTHIAZIDE [Concomitant]
  10. KADIAN [Concomitant]
  11. CALCIUM GLUCONATE [Concomitant]

REACTIONS (8)
  - CONFUSIONAL STATE [None]
  - DEMENTIA ALZHEIMER'S TYPE [None]
  - ISCHAEMIA [None]
  - LUNG NEOPLASM MALIGNANT [None]
  - LYMPHOMA [None]
  - MALAISE [None]
  - MEMORY IMPAIRMENT [None]
  - THYROID NEOPLASM [None]
